FAERS Safety Report 25266907 (Version 2)
Quarter: 2025Q3

REPORT INFORMATION
  Report Type: Spontaneous
  Country: CA (occurrence: CA)
  Receive Date: 20250505
  Receipt Date: 20250929
  Transmission Date: 20251021
  Serious: Yes (Hospitalization, Other)
  Sender: CELLTRION
  Company Number: CA-CELLTRION INC.-2024CA020235

PATIENT

DRUGS (10)
  1. YUFLYMA [Suspect]
     Active Substance: ADALIMUMAB-AATY
     Indication: Hidradenitis
     Route: 058
     Dates: start: 20240108
  2. YUFLYMA [Suspect]
     Active Substance: ADALIMUMAB-AATY
     Route: 058
  3. YUFLYMA [Suspect]
     Active Substance: ADALIMUMAB-AATY
     Route: 058
  4. YUFLYMA [Suspect]
     Active Substance: ADALIMUMAB-AATY
     Dosage: 40 MG, 1/WEEK
     Route: 058
     Dates: start: 20240818
  5. YUFLYMA [Suspect]
     Active Substance: ADALIMUMAB-AATY
     Dosage: MAINTENANCE - 40 MG - SC (SUBCUTANEOUS) EVERY 1 WEEKS
     Route: 058
     Dates: start: 20240108
  6. METFORMIN [Concomitant]
     Active Substance: METFORMIN HYDROCHLORIDE
     Indication: Product used for unknown indication
     Route: 065
  7. ATORVASTATIN [Concomitant]
     Active Substance: ATORVASTATIN
     Indication: Product used for unknown indication
     Route: 065
  8. PERINDOPRIL ERBUMINE [Concomitant]
     Active Substance: PERINDOPRIL ERBUMINE
     Indication: Product used for unknown indication
     Route: 065
  9. PANTOPRAZOLE [Concomitant]
     Active Substance: PANTOPRAZOLE
     Indication: Product used for unknown indication
     Route: 065
  10. JARDIANCE [Concomitant]
     Active Substance: EMPAGLIFLOZIN
     Indication: Product used for unknown indication
     Route: 065

REACTIONS (10)
  - Gastrointestinal disorder [Not Recovered/Not Resolved]
  - Condition aggravated [Not Recovered/Not Resolved]
  - Malaise [Not Recovered/Not Resolved]
  - Vaccine interaction [Not Recovered/Not Resolved]
  - Diarrhoea [Not Recovered/Not Resolved]
  - Impaired work ability [Not Recovered/Not Resolved]
  - Cough [Not Recovered/Not Resolved]
  - Dehydration [Not Recovered/Not Resolved]
  - Weight decreased [Unknown]
  - Off label use [Unknown]

NARRATIVE: CASE EVENT DATE: 20230801
